FAERS Safety Report 20264664 (Version 2)
Quarter: 2022Q1

REPORT INFORMATION
  Report Type: Spontaneous
  Country: US (occurrence: US)
  Receive Date: 20211231
  Receipt Date: 20220113
  Transmission Date: 20220423
  Serious: No
  Sender: FDA-Public Use
  Company Number: US-NOVARTISTESTPH-NVSC2021US299703

PATIENT
  Sex: Female

DRUGS (1)
  1. XIIDRA [Suspect]
     Active Substance: LIFITEGRAST
     Indication: Product used for unknown indication
     Dosage: 1 DRP, BID (IN EACH EYE)
     Route: 065

REACTIONS (6)
  - Erythema [Unknown]
  - Flushing [Unknown]
  - Vision blurred [Unknown]
  - Eye irritation [Unknown]
  - Headache [Unknown]
  - Hypersensitivity [Unknown]
